FAERS Safety Report 23913634 (Version 2)
Quarter: 2024Q4

REPORT INFORMATION
  Report Type: Spontaneous
  Country: JP (occurrence: JP)
  Receive Date: 20240529
  Receipt Date: 20241011
  Transmission Date: 20250114
  Serious: Yes (Other)
  Sender: NOVARTIS
  Company Number: JP-002147023-NVSJ2024JP006180

PATIENT
  Sex: Female
  Weight: 77 kg

DRUGS (6)
  1. CANAKINUMAB [Suspect]
     Active Substance: CANAKINUMAB
     Indication: Muckle-Wells syndrome
     Dosage: 150 MG
     Route: 065
  2. CANAKINUMAB [Suspect]
     Active Substance: CANAKINUMAB
     Indication: Cryopyrin associated periodic syndrome
     Dosage: UNK
     Route: 065
  3. CANAKINUMAB [Suspect]
     Active Substance: CANAKINUMAB
     Dosage: 150 MG
     Route: 065
     Dates: start: 202003
  4. CANAKINUMAB [Suspect]
     Active Substance: CANAKINUMAB
     Dosage: 300 MG
     Route: 065
     Dates: start: 202205
  5. CANAKINUMAB [Suspect]
     Active Substance: CANAKINUMAB
     Dosage: 450 MG
     Route: 065
     Dates: start: 202404
  6. CANAKINUMAB [Suspect]
     Active Substance: CANAKINUMAB
     Dosage: 300 MG
     Route: 065
     Dates: start: 202405

REACTIONS (10)
  - Haematochezia [Unknown]
  - Pyrexia [Unknown]
  - Arthralgia [Unknown]
  - Rash [Unknown]
  - Back pain [Recovering/Resolving]
  - Sacral pain [Unknown]
  - Arthritis [Unknown]
  - Fatigue [Unknown]
  - Tenosynovitis [Unknown]
  - Abdominal pain lower [Unknown]

NARRATIVE: CASE EVENT DATE: 20231201
